FAERS Safety Report 25334909 (Version 1)
Quarter: 2025Q2

REPORT INFORMATION
  Report Type: Spontaneous
  Country: AT (occurrence: AT)
  Receive Date: 20250520
  Receipt Date: 20250520
  Transmission Date: 20250716
  Serious: Yes (Other)
  Sender: AMGEN
  Company Number: AT-AMGEN-AUTSP2025094036

PATIENT
  Sex: Female

DRUGS (2)
  1. REPATHA [Suspect]
     Active Substance: EVOLOCUMAB
     Indication: Product used for unknown indication
     Route: 065
     Dates: end: 202410
  2. LEQVIO [Concomitant]
     Active Substance: INCLISIRAN SODIUM
     Dates: start: 202411

REACTIONS (2)
  - Stent placement [Unknown]
  - Blood cholesterol increased [Unknown]
